FAERS Safety Report 9331034 (Version 2)
Quarter: 2013Q3

REPORT INFORMATION
  Report Type: Spontaneous
  Country: DE (occurrence: DE)
  Receive Date: 20130605
  Receipt Date: 20130722
  Transmission Date: 20140515
  Serious: Yes (Congenital Anomaly)
  Sender: FDA-Public Use
  Company Number: DE-ELI_LILLY_AND_COMPANY-DE201305006992

PATIENT
  Sex: 0

DRUGS (6)
  1. FORSTEO [Suspect]
     Indication: OSTEOPOROSIS
     Dosage: 20 UG, QD
     Route: 064
  2. FORSTEO [Suspect]
     Indication: OSTEOPOROSIS
     Dosage: 20 UG, QD
     Route: 064
  3. DEKRISTOL [Concomitant]
  4. DEKRISTOL [Concomitant]
  5. CALCIUM + VITAMIN D [Concomitant]
  6. CALCIUM + VITAMIN D [Concomitant]

REACTIONS (2)
  - Dandy-Walker syndrome [Not Recovered/Not Resolved]
  - Foetal exposure during pregnancy [Recovered/Resolved]
